FAERS Safety Report 11517577 (Version 1)
Quarter: 2015Q3

REPORT INFORMATION
  Report Type: Spontaneous
  Country: US (occurrence: US)
  Receive Date: 20150917
  Receipt Date: 20150917
  Transmission Date: 20151125
  Serious: No
  Sender: FDA-Public Use
  Company Number: US-ACTELION PHARMACEUTICALS US, INC.-A-NJ2014-103051

PATIENT
  Age: 63 Year
  Sex: Female

DRUGS (2)
  1. VENTAVIS [Suspect]
     Active Substance: ILOPROST
     Indication: PULMONARY HYPERTENSION
     Dosage: 5 MCG, 6 TO 9X/DAY
     Route: 055
     Dates: start: 20140605
  2. RIOCIGUAT [Concomitant]
     Active Substance: RIOCIGUAT

REACTIONS (7)
  - Gingival bleeding [Unknown]
  - Tooth disorder [Unknown]
  - Noninfective gingivitis [Unknown]
  - Toothache [Unknown]
  - Gingival disorder [Unknown]
  - Cough [Unknown]
  - Insomnia [Unknown]
